FAERS Safety Report 5008279-2 (Version None)
Quarter: 2006Q2

REPORT INFORMATION
  Report Type: 
  Country: None (occurrence: None)
  Receive Date: 20060523
  Receipt Date: 20060109
  Transmission Date: 20061013
  Serious: No
  Sender: FDA-Public Use
  Company Number: A-US2005-10528

PATIENT
  Age: 72 Year
  Sex: Female

DRUGS (2)
  1. EPOPROSTENOL [Suspect]
     Indication: DRUG USE FOR UNKNOWN INDICATION
     Route: 065
  2. TRACLEER [Suspect]
     Indication: PULMONARY HYPERTENSION
     Dosage: 125MG TWICE PER DAY
     Route: 048
     Dates: start: 20050625

REACTIONS (2)
  - DIARRHOEA [None]
  - VOMITING [None]
